FAERS Safety Report 13345369 (Version 1)
Quarter: 2017Q1

REPORT INFORMATION
  Report Type: Spontaneous
  Country: US (occurrence: US)
  Receive Date: 20170317
  Receipt Date: 20170317
  Transmission Date: 20170428
  Serious: No
  Sender: FDA-Public Use
  Company Number: US-HORIZON-MIG-0002-2017

PATIENT
  Age: 62 Year
  Sex: Female

DRUGS (1)
  1. MIGERGOT [Suspect]
     Active Substance: CAFFEINE\ERGOTAMINE TARTRATE
     Indication: MIGRAINE

REACTIONS (3)
  - Vomiting [Unknown]
  - Headache [Unknown]
  - Nausea [Unknown]
